FAERS Safety Report 4750379-6 (Version None)
Quarter: 2005Q3

REPORT INFORMATION
  Report Type: 
  Country: None (occurrence: None)
  Receive Date: 20050823
  Receipt Date: 20050811
  Transmission Date: 20060218
  Serious: Yes (Other)
  Sender: FDA-Public Use
  Company Number: 2005AP04388

PATIENT
  Age: 73 Year
  Sex: Male

DRUGS (5)
  1. ATENOLOL [Suspect]
     Indication: BLOOD PRESSURE
     Route: 048
     Dates: start: 20000101
  2. NORVASC [Suspect]
     Indication: BLOOD PRESSURE
     Dosage: NDC 0069-1530-00
     Dates: start: 20000101
  3. NORVASC [Suspect]
     Indication: ISCHAEMIC HEART DISEASE PROPHYLAXIS
     Dosage: NDC 0069-1530-00
     Dates: start: 20000101
  4. LIPITOR [Suspect]
     Indication: BLOOD CHOLESTEROL
     Dates: start: 20000101
  5. ASPIRIN [Concomitant]
     Indication: THROMBOSIS PROPHYLAXIS

REACTIONS (9)
  - ASTHENOPIA [None]
  - BODY HEIGHT DECREASED [None]
  - CATARACT [None]
  - CHEST PAIN [None]
  - DIZZINESS [None]
  - ERECTILE DYSFUNCTION [None]
  - HYPERTENSION [None]
  - PROSTATIC SPECIFIC ANTIGEN INCREASED [None]
  - SOMNOLENCE [None]
